FAERS Safety Report 4355009-3 (Version None)
Quarter: 2004Q2

REPORT INFORMATION
  Report Type: 
  Country: None (occurrence: None)
  Receive Date: 20040504
  Receipt Date: 20040421
  Transmission Date: 20050107
  Serious: Yes (Hospitalization, Other)
  Sender: FDA-Public Use
  Company Number: 2004015821

PATIENT
  Age: 31 Year
  Sex: Female
  Weight: 50 kg

DRUGS (4)
  1. FELDENE [Suspect]
     Indication: RHEUMATOID ARTHRITIS
     Dosage: 20 MG DAILY, RECTAL
     Route: 054
     Dates: start: 20040206, end: 20040224
  2. METHOTREXATE SODIUM [Suspect]
     Indication: RHEUMATOID ARTHRITIS
     Dosage: 8 MG WEEKLY, ORAL
     Route: 048
     Dates: start: 20021130, end: 20040224
  3. PREDNISOLONE [Concomitant]
  4. SODIUM AUROTHIOMALATE (SODIUM AUROTHIOMALATE) [Concomitant]

REACTIONS (1)
  - LIVER DISORDER [None]
